FAERS Safety Report 12650636 (Version 2)
Quarter: 2017Q2

REPORT INFORMATION
  Report Type: Report from Study
  Country: FR (occurrence: FR)
  Receive Date: 20160815
  Receipt Date: 20170401
  Transmission Date: 20170830
  Serious: Yes (Life-Threatening, Hospitalization)
  Sender: FDA-Public Use
  Company Number: FR-BAXTER-2016BAX041589

PATIENT
  Age: 69 Year
  Sex: Female

DRUGS (49)
  1. RITUXIMAB [Suspect]
     Active Substance: RITUXIMAB
     Indication: DIFFUSE LARGE B-CELL LYMPHOMA
     Dosage: UNIT DOSE PER PROTOCOL
     Route: 042
     Dates: start: 20160616
  2. PREDNISONE. [Suspect]
     Active Substance: PREDNISONE
     Indication: DIFFUSE LARGE B-CELL LYMPHOMA
     Dosage: DAYS 1-5
     Route: 048
     Dates: start: 20160616
  3. PREDNISONE. [Suspect]
     Active Substance: PREDNISONE
     Dosage: DAYS 1-5, MOST RECENT DOSE PRIOR TO ONSET OF PYLONEPHRITIS ESCHERICHIA COLI
     Route: 048
     Dates: start: 20160801
  4. VENETOCLAX [Suspect]
     Active Substance: VENETOCLAX
     Dosage: MOST RECENT DOSE PRIOR TO ONSET OF PYLO NEPHRITIS ESCHERICHIA COLI
     Route: 048
     Dates: start: 20160804
  5. INEXIUM [Concomitant]
     Active Substance: ESOMEPRAZOLE
     Indication: GASTROOESOPHAGEAL REFLUX DISEASE
     Route: 065
  6. ACTISKENAN [Concomitant]
     Active Substance: MORPHINE SULFATE
     Indication: PAIN
     Route: 065
  7. ZOPHREN [Concomitant]
     Active Substance: ONDANSETRON
     Indication: NAUSEA
     Route: 065
     Dates: start: 20160617
  8. PHOCYTAN [Concomitant]
     Active Substance: .ALPHA.-GLUCOSE-1-PHOSPHATE
     Indication: HYPOPHOSPHATAEMIA
     Route: 065
     Dates: start: 20160805, end: 20160811
  9. DOXORUBICIN [Suspect]
     Active Substance: DOXORUBICIN
     Dosage: MOST RECENT DOSE PRIOR TO ONSET OF PYLONEPHRITIS ESCHERICHIA COLI
     Route: 042
     Dates: start: 20160728
  10. SKENAN [Concomitant]
     Active Substance: MORPHINE SULFATE
     Indication: PAIN
     Route: 065
  11. LOVENOX [Concomitant]
     Active Substance: ENOXAPARIN SODIUM
     Indication: ANTICOAGULANT THERAPY
     Route: 065
     Dates: end: 20160707
  12. ZELITREX [Concomitant]
     Active Substance: VALACYCLOVIR HYDROCHLORIDE
     Indication: HERPES ZOSTER
     Route: 065
     Dates: start: 20160616
  13. BACTRIM [Concomitant]
     Active Substance: SULFAMETHOXAZOLE\TRIMETHOPRIM
     Indication: INFECTION PROPHYLAXIS
     Route: 065
     Dates: start: 20160617
  14. ZARZIO [Concomitant]
     Active Substance: FILGRASTIM
     Indication: PROPHYLAXIS
     Route: 065
     Dates: start: 20160713, end: 20160717
  15. PHOSPHONEUROS [Concomitant]
     Active Substance: CALCIUM PHOSPHATE, DIBASIC, ANHYDROUS\MAGNESIUM GLYCEROPHOSPHATE\PHOSPHORIC ACID\SODIUM PHOSPHATE, DIBASIC
     Indication: HYPOPHOSPHATAEMIA
     Route: 065
     Dates: start: 20160805, end: 20160805
  16. ZOMETA [Concomitant]
     Active Substance: ZOLEDRONIC ACID
     Indication: PROPHYLAXIS
     Route: 065
     Dates: start: 20160813, end: 20160813
  17. EPREX [Concomitant]
     Active Substance: ERYTHROPOIETIN
     Indication: ANAEMIA
     Route: 065
     Dates: start: 20160818
  18. RITUXIMAB [Suspect]
     Active Substance: RITUXIMAB
     Dosage: MOST RECENT DOSE PRIOR TO ONSET OF PYLONEPHRITIS ESCHERICHIA COLI
     Route: 042
     Dates: start: 20160728
  19. PREDNISONE. [Suspect]
     Active Substance: PREDNISONE
     Dosage: DAYS 1-5, MOST RECENT DOSE OF PREDNISONE PRIOR TO THE ONSET OF THE IMBALANCE OF DIABETES
     Route: 048
     Dates: start: 20160711
  20. DOXORUBICIN [Suspect]
     Active Substance: DOXORUBICIN
     Dosage: MOST RECENT DOSE OF VINCRISTINE PRIOR TO THE ONSET OF THE IMBALANCE OF DIABETES
     Route: 042
     Dates: start: 20160707
  21. ALTIZIDE [Concomitant]
     Active Substance: ALTHIAZIDE
     Indication: HYPERTENSION
     Route: 065
  22. SPIRONOLACTONE. [Concomitant]
     Active Substance: SPIRONOLACTONE
     Indication: HYPERTENSION
     Route: 065
  23. SIMVASTATINE [Concomitant]
     Active Substance: SIMVASTATIN
     Indication: HYPERCHOLESTEROLAEMIA
     Route: 065
  24. LEDERFOLINE [Concomitant]
     Active Substance: LEUCOVORIN CALCIUM
     Indication: INFECTION PROPHYLAXIS
     Route: 065
     Dates: start: 20160616
  25. PERFALGAN [Concomitant]
     Active Substance: ACETAMINOPHEN
     Indication: PREMEDICATION
     Route: 065
     Dates: start: 20160707, end: 20160707
  26. NACL [Concomitant]
     Active Substance: SODIUM CHLORIDE
     Indication: HYPONATRAEMIA
     Route: 065
     Dates: start: 20160805, end: 20160805
  27. ENDOXAN 1000 MG, POUDRE POUR SOLUTION INJECTABLE [Suspect]
     Active Substance: CYCLOPHOSPHAMIDE
     Indication: DIFFUSE LARGE B-CELL LYMPHOMA
     Dosage: ROUTE AND UNIT DOSE PER PROTOCOL
     Route: 042
     Dates: start: 20160617
  28. METFORMIN [Concomitant]
     Active Substance: METFORMIN HYDROCHLORIDE
     Indication: DIABETES MELLITUS
     Route: 065
  29. ZARZIO [Concomitant]
     Active Substance: FILGRASTIM
     Route: 065
     Dates: start: 20160802, end: 20160802
  30. DIFFU K [Concomitant]
     Active Substance: POTASSIUM CHLORIDE
     Indication: HYPOKALAEMIA
     Route: 065
     Dates: start: 20160805, end: 20160805
  31. VINCRISTINE [Suspect]
     Active Substance: VINCRISTINE
     Indication: DIFFUSE LARGE B-CELL LYMPHOMA
     Dosage: ROUTE AND UNIT DOSE PER PROTOCOL
     Route: 042
     Dates: start: 20160617
  32. POLARAMINE [Concomitant]
     Active Substance: DEXCHLORPHENIRAMINE MALEATE
     Indication: PREMEDICATION
     Route: 065
     Dates: start: 20160707, end: 20160707
  33. POLARAMINE [Concomitant]
     Active Substance: DEXCHLORPHENIRAMINE MALEATE
     Route: 065
     Dates: start: 20160817, end: 20160817
  34. PERFALGAN [Concomitant]
     Active Substance: ACETAMINOPHEN
     Route: 065
     Dates: start: 20160728, end: 20160728
  35. ENDOXAN 1000 MG, POUDRE POUR SOLUTION INJECTABLE [Suspect]
     Active Substance: CYCLOPHOSPHAMIDE
     Dosage: MOST RECENT DOSE OF VINCRISTINE PRIOR TO THE ONSET OF THE IMBALANCE OF DIABETES
     Route: 042
     Dates: start: 20160707
  36. RITUXIMAB [Suspect]
     Active Substance: RITUXIMAB
     Dosage: MOST RECENT DOSE OF VINCRISTINE PRIOR TO THE ONSET OF THE IMBALANCE OF DIABETES
     Route: 042
     Dates: start: 20160707
  37. VINCRISTINE [Suspect]
     Active Substance: VINCRISTINE
     Dosage: MOST RECENT DOSE OF VINCRISTINE PRIOR TO THE ONSET OF THE IMBALANCE OF DIABETES
     Route: 042
     Dates: start: 20160707
  38. VINCRISTINE [Suspect]
     Active Substance: VINCRISTINE
     Dosage: MOST RECENT DOSE PRIOR TO ONSET OF PYLONEPHRITIS ESCHERICHIA COLI
     Route: 042
     Dates: start: 20160728
  39. VENETOCLAX [Suspect]
     Active Substance: VENETOCLAX
     Dosage: MOST RECENT DOSE OF VINCRISTINE PRIOR TO THE ONSET OF THE IMBALANCE OF DIABETES
     Route: 048
     Dates: start: 20160716
  40. ZOPHREN [Concomitant]
     Active Substance: ONDANSETRON
     Indication: VOMITING
  41. RED BLOOD CELLS [Concomitant]
     Active Substance: HUMAN RED BLOOD CELL
     Indication: ANAEMIA
     Route: 065
     Dates: start: 20160804, end: 20160804
  42. ENDOXAN 1000 MG, POUDRE POUR SOLUTION INJECTABLE [Suspect]
     Active Substance: CYCLOPHOSPHAMIDE
     Dosage: MOST RECENT DOSE PRIOR TO ONSET OF PYLONEPHRITIS ESCHERICHIA COLI
     Route: 042
     Dates: start: 20160728
  43. LOVENOX [Concomitant]
     Active Substance: ENOXAPARIN SODIUM
     Route: 065
     Dates: start: 20160728
  44. DOXORUBICIN [Suspect]
     Active Substance: DOXORUBICIN
     Indication: DIFFUSE LARGE B-CELL LYMPHOMA
     Dosage: ROUTE AND UNIT DOSE PER PROTOCOL
     Route: 042
     Dates: start: 20160617
  45. VENETOCLAX [Suspect]
     Active Substance: VENETOCLAX
     Indication: DIFFUSE LARGE B-CELL LYMPHOMA
     Dosage: ROUTE PER PROTOCOL
     Route: 048
     Dates: start: 20160620
  46. POLARAMINE [Concomitant]
     Active Substance: DEXCHLORPHENIRAMINE MALEATE
     Route: 065
     Dates: start: 20160728, end: 20160728
  47. PERFALGAN [Concomitant]
     Active Substance: ACETAMINOPHEN
     Route: 065
     Dates: start: 20160817, end: 20160817
  48. PRIMPERAN [Concomitant]
     Active Substance: METOCLOPRAMIDE HYDROCHLORIDE
     Indication: NAUSEA
     Dosage: PRN
     Route: 065
     Dates: start: 20160622
  49. SOLU-MEDROL [Concomitant]
     Active Substance: METHYLPREDNISOLONE SODIUM SUCCINATE
     Indication: HEMIPARESIS
     Route: 065
     Dates: start: 20160804, end: 20160804

REACTIONS (2)
  - Diabetes mellitus inadequate control [Recovered/Resolved]
  - Escherichia pyelonephritis [Recovered/Resolved]

NARRATIVE: CASE EVENT DATE: 20160728
